FAERS Safety Report 7257976-7 (Version None)
Quarter: 2011Q1

REPORT INFORMATION
  Report Type: 
  Country: None (occurrence: None)
  Receive Date: 20110129
  Receipt Date: 20100712
  Transmission Date: 20110831
  Serious: No
  Sender: FDA-Public Use
  Company Number: US-ABBOTT-10P-163-0650708-00

PATIENT
  Sex: Female

DRUGS (8)
  1. NEXIUM [Concomitant]
     Indication: GASTROOESOPHAGEAL REFLUX DISEASE
     Dosage: 40 MG DAILY
  2. VITAMIN B COMPLEX [Concomitant]
  3. HUMIRA [Suspect]
     Indication: PSORIASIS
     Dates: start: 20100603
  4. TRAZODONE HCL [Concomitant]
     Dosage: 50 MG DAILY HS SLEEP
  5. ZETIA [Concomitant]
     Indication: BLOOD CHOLESTEROL
     Dosage: 10 MG DAILY
  6. HYDROXYCHOLR [Concomitant]
     Indication: SYSTEMIC LUPUS ERYTHEMATOSUS
     Dosage: 200 MG DAILY
  7. PLAQUENIL [Concomitant]
     Route: 048
     Dates: start: 20090101
  8. MULTI-VITAMIN [Concomitant]

REACTIONS (4)
  - PSORIASIS [None]
  - FATIGUE [None]
  - INJECTION SITE PAIN [None]
  - DRUG INEFFECTIVE [None]
